FAERS Safety Report 23758369 (Version 2)
Quarter: 2024Q2

REPORT INFORMATION
  Report Type: Report from Study
  Country: CA (occurrence: CA)
  Receive Date: 20240418
  Receipt Date: 20240511
  Transmission Date: 20240717
  Serious: Yes (Other)
  Sender: FDA-Public Use
  Company Number: CA-TEVA-VS-3182282

PATIENT
  Age: 9 Year
  Sex: Male

DRUGS (1)
  1. CEPHALEXIN [Suspect]
     Active Substance: CEPHALEXIN
     Indication: Antibiotic therapy
     Route: 048

REACTIONS (8)
  - Anaphylactic reaction [Unknown]
  - Urticaria [Unknown]
  - Conjunctivitis [Unknown]
  - Throat tightness [Unknown]
  - Gastrointestinal disorder [Unknown]
  - Dyspnoea [Unknown]
  - Pulmonary congestion [Unknown]
  - Cough [Unknown]
